FAERS Safety Report 6535323-3 (Version None)
Quarter: 2010Q1

REPORT INFORMATION
  Report Type: 
  Country: None (occurrence: None)
  Receive Date: 20100113
  Receipt Date: 20100108
  Transmission Date: 20100710
  Serious: Yes (Hospitalization, Other)
  Sender: FDA-Public Use
  Company Number: CA-ROCHE-678602

PATIENT
  Sex: Female
  Weight: 36 kg

DRUGS (3)
  1. NAPROXEN [Suspect]
     Indication: DRUG USE FOR UNKNOWN INDICATION
     Route: 065
  2. XOLAIR [Suspect]
     Indication: ASTHMA
     Route: 058
     Dates: start: 20050425
  3. PREDNISONE [Concomitant]
     Indication: ASTHMA

REACTIONS (3)
  - GASTROENTERITIS VIRAL [None]
  - MALLORY-WEISS SYNDROME [None]
  - VOMITING [None]
